FAERS Safety Report 6865279-5 (Version None)
Quarter: 2010Q3

REPORT INFORMATION
  Report Type: 
  Country: None (occurrence: None)
  Receive Date: 20100721
  Receipt Date: 20080617
  Transmission Date: 20110219
  Serious: No
  Sender: FDA-Public Use
  Company Number: US-PFIZER INC-2008036516

PATIENT
  Sex: Male
  Weight: 78.93 kg

DRUGS (1)
  1. CHANTIX [Suspect]
     Indication: SMOKING CESSATION THERAPY
     Dates: start: 20080301

REACTIONS (3)
  - MENTAL DISORDER [None]
  - MOOD ALTERED [None]
  - PERSONALITY CHANGE [None]
